FAERS Safety Report 6433293-X (Version None)
Quarter: 2009Q4

REPORT INFORMATION
  Report Type: 
  Country: None (occurrence: None)
  Receive Date: 20091109
  Receipt Date: 20091030
  Transmission Date: 20100525
  Serious: Yes (Other)
  Sender: FDA-Public Use
  Company Number: BR-PFIZER INC-2009290881

PATIENT
  Age: 58 Year
  Sex: Female

DRUGS (7)
  1. LIPITOR [Suspect]
     Indication: BLOOD CHOLESTEROL INCREASED
     Dosage: UNK
     Route: 048
     Dates: start: 20091026
  2. LIPITOR [Suspect]
     Indication: BLOOD TRIGLYCERIDES INCREASED
  3. SIMVASTATIN [Suspect]
     Dosage: UNK
  4. NATRILIX [Concomitant]
     Dosage: UNK
  5. GALVUS [Concomitant]
     Dosage: UNK
  6. DIAMICRON [Concomitant]
     Dosage: UNK
  7. DIOVAN HCT [Concomitant]
     Dosage: UNK

REACTIONS (2)
  - CEREBROVASCULAR ACCIDENT [None]
  - MALAISE [None]
